FAERS Safety Report 15832342 (Version 1)
Quarter: 2018Q4

REPORT INFORMATION
  Report Type: Spontaneous
  Country: US (occurrence: US)
  Receive Date: 20181218
  Receipt Date: 20181218
  Transmission Date: 20190205
  Serious: No
  Sender: FDA-Public Use
  Company Number: None

PATIENT
  Age: 40 Year
  Sex: Male

DRUGS (1)
  1. MEKINIST [Suspect]
     Active Substance: TRAMETINIB DIMETHYL SULFOXIDE
     Dates: start: 201811

REACTIONS (5)
  - Nasopharyngitis [None]
  - Cough [None]
  - Influenza like illness [None]
  - Nasal congestion [None]
  - Pyrexia [None]

NARRATIVE: CASE EVENT DATE: 20181216
